FAERS Safety Report 9046173 (Version 1)
Quarter: 2013Q1

REPORT INFORMATION
  Report Type: Spontaneous
  Country: CA (occurrence: CA)
  Receive Date: 20130201
  Receipt Date: 20130201
  Transmission Date: 20140127
  Serious: Yes (Disabling)
  Sender: FDA-Public Use
  Company Number: PHHY2013CA008639

PATIENT
  Sex: Female
  Weight: 49.89 kg

DRUGS (11)
  1. DIOVAN [Suspect]
  2. ACETYLSALICYLIC ACID [Concomitant]
  3. DILTIAZEM [Concomitant]
  4. HYDROCHLOROTHIAZIDE [Concomitant]
  5. PREDNISONE [Concomitant]
  6. RABEPRAZOLE [Concomitant]
  7. RAMIPRIL [Concomitant]
  8. RENEDIL [Concomitant]
  9. SYNTHROID [Concomitant]
  10. TIMOLOL [Concomitant]
  11. ZOPICLONE [Concomitant]

REACTIONS (3)
  - Muscular weakness [Not Recovered/Not Resolved]
  - Myalgia [Not Recovered/Not Resolved]
  - Tension headache [Not Recovered/Not Resolved]
